FAERS Safety Report 13884126 (Version 1)
Quarter: 2017Q3

REPORT INFORMATION
  Report Type: Report from Study
  Country: None (occurrence: RO)
  Receive Date: 20170821
  Receipt Date: 20170821
  Transmission Date: 20171127
  Serious: Yes (Death, Hospitalization, Other)
  Sender: FDA-Public Use
  Company Number: RO-ABBVIE-17K-135-2075185-00

PATIENT
  Age: 80 Year
  Sex: Male

DRUGS (6)
  1. CONTROLOC [Concomitant]
     Active Substance: PANTOPRAZOLE SODIUM
     Indication: HYPERCHLORHYDRIA
     Route: 048
     Dates: start: 201507
  2. NORVASC [Concomitant]
     Active Substance: AMLODIPINE BESYLATE
     Indication: MYOCARDIAL ISCHAEMIA
     Route: 048
     Dates: start: 2010
  3. NITROMINT [Concomitant]
     Indication: MYOCARDIAL ISCHAEMIA
     Route: 048
     Dates: start: 2010
  4. NEUPRO [Concomitant]
     Active Substance: ROTIGOTINE
     Indication: PARKINSON^S DISEASE
     Dates: start: 2015
  5. DUODOPA [Suspect]
     Active Substance: CARBIDOPA\LEVODOPA
     Indication: PARKINSON^S DISEASE
     Dosage: 16H MD= 8.5/ CR=5.2/ED= 2.2
     Route: 050
     Dates: start: 20140507
  6. IMOVANE [Concomitant]
     Active Substance: ZOPICLONE
     Indication: SLEEP DISORDER
     Route: 048
     Dates: start: 2015

REACTIONS (6)
  - Fall [Unknown]
  - Cardio-respiratory arrest [Fatal]
  - Pyrexia [Not Recovered/Not Resolved]
  - Loss of consciousness [Not Recovered/Not Resolved]
  - Medical induction of coma [Not Recovered/Not Resolved]
  - Hallucination [Recovered/Resolved]

NARRATIVE: CASE EVENT DATE: 20170810
